FAERS Safety Report 15395708 (Version 2)
Quarter: 2019Q1

REPORT INFORMATION
  Report Type: Spontaneous
  Country: LB (occurrence: LB)
  Receive Date: 20180918
  Receipt Date: 20190108
  Transmission Date: 20190417
  Serious: Yes (Hospitalization)
  Sender: FDA-Public Use
  Company Number: LB-JNJFOC-20180903566

PATIENT

DRUGS (3)
  1. INVOKANA [Suspect]
     Active Substance: CANAGLIFLOZIN
     Indication: TYPE 2 DIABETES MELLITUS
     Dosage: INITIATED ON UNSPECIFIED DATE (BETWEEN MAR-2013 AND MAY-2018)
     Route: 048
  2. JARDIANCE [Suspect]
     Active Substance: EMPAGLIFLOZIN
     Indication: TYPE 2 DIABETES MELLITUS
     Dosage: INITIATED ON UNSPECIFIED DATE (BETWEEN MAR-2013 AND MAY-2018)
     Route: 065
  3. FARXIGA [Suspect]
     Active Substance: DAPAGLIFLOZIN PROPANEDIOL
     Indication: TYPE 2 DIABETES MELLITUS
     Dosage: INITIATED ON UNSPECIFIED DATE (BETWEEN MAR-2013 AND MAY-2018)
     Route: 065

REACTIONS (1)
  - Fournier^s gangrene [Unknown]
